FAERS Safety Report 16390773 (Version 1)
Quarter: 2019Q2

REPORT INFORMATION
  Report Type: Spontaneous
  Country: CN (occurrence: CN)
  Receive Date: 20190604
  Receipt Date: 20190604
  Transmission Date: 20190711
  Serious: Yes (Hospitalization, Other)
  Sender: FDA-Public Use
  Company Number: CN-PFIZER INC-2019230084

PATIENT
  Sex: Male

DRUGS (2)
  1. ATORVASTATIN CALCIUM. [Suspect]
     Active Substance: ATORVASTATIN CALCIUM
     Dosage: 20 MG, 1X/DAY (EVERY NIGHT)
  2. CLOPIDOGREL [Concomitant]
     Active Substance: CLOPIDOGREL BISULFATE
     Dosage: 75 MG, 1X/DAY (QD)

REACTIONS (14)
  - Decreased appetite [Unknown]
  - Pyrexia [Unknown]
  - Poor quality sleep [Unknown]
  - Asthenia [Unknown]
  - Oliguria [Unknown]
  - End stage renal disease [Unknown]
  - Cough [Unknown]
  - Productive cough [Unknown]
  - Fatigue [Unknown]
  - Blood pressure increased [Unknown]
  - Petechiae [Unknown]
  - Blood creatinine increased [Unknown]
  - Temperature intolerance [Unknown]
  - Faecal volume decreased [Unknown]
